FAERS Safety Report 18988781 (Version 3)
Quarter: 2021Q2

REPORT INFORMATION
  Report Type: Report from Study
  Country: None (occurrence: CO)
  Receive Date: 20210309
  Receipt Date: 20210402
  Transmission Date: 20210717
  Serious: Yes (Death, Hospitalization, Other)
  Sender: FDA-Public Use
  Company Number: CO-ABBVIE-21K-036-3806485-00

PATIENT
  Age: 52 Year
  Sex: Female
  Weight: 66 kg

DRUGS (1)
  1. HUMIRA [Suspect]
     Active Substance: ADALIMUMAB
     Indication: UVEITIS
     Route: 058
     Dates: start: 20201202, end: 20210208

REACTIONS (8)
  - Computerised tomogram liver abnormal [Unknown]
  - Infection [Not Recovered/Not Resolved]
  - Cough [Recovering/Resolving]
  - Death [Fatal]
  - Decreased appetite [Recovering/Resolving]
  - Hepatitis [Recovering/Resolving]
  - Liver disorder [Recovering/Resolving]
  - Pulmonary oedema [Not Recovered/Not Resolved]

NARRATIVE: CASE EVENT DATE: 2021
